FAERS Safety Report 19568578 (Version 6)
Quarter: 2022Q3

REPORT INFORMATION
  Report Type: Report from Study
  Country: JP (occurrence: JP)
  Receive Date: 20210716
  Receipt Date: 20220804
  Transmission Date: 20221028
  Serious: Yes (Other)
  Sender: FDA-Public Use
  Company Number: JP-CHUGAI-2021005066

PATIENT
  Age: 62 Year
  Sex: Female
  Weight: 44.5 kg

DRUGS (34)
  1. BEVACIZUMAB [Suspect]
     Active Substance: BEVACIZUMAB
     Indication: Adenocarcinoma of colon
     Route: 041
     Dates: start: 20210421, end: 20210421
  2. BEVACIZUMAB [Suspect]
     Active Substance: BEVACIZUMAB
     Route: 041
     Dates: start: 20210512, end: 20210818
  3. BEVACIZUMAB [Suspect]
     Active Substance: BEVACIZUMAB
     Route: 041
     Dates: start: 20210908, end: 20211006
  4. BEVACIZUMAB [Suspect]
     Active Substance: BEVACIZUMAB
     Route: 041
     Dates: start: 20211104, end: 20211201
  5. IRINOTECAN HYDROCHLORIDE [Concomitant]
     Active Substance: IRINOTECAN HYDROCHLORIDE
     Indication: Adenocarcinoma of colon
     Dosage: 230 MILLIGRAM, ONCE/2WEEKS
     Route: 041
     Dates: start: 20210421, end: 20210421
  6. IRINOTECAN HYDROCHLORIDE [Concomitant]
     Active Substance: IRINOTECAN HYDROCHLORIDE
     Dosage: 230 MILLIGRAM, ONCE/2WEEKS
     Route: 041
     Dates: start: 20210512, end: 20210818
  7. IRINOTECAN HYDROCHLORIDE [Concomitant]
     Active Substance: IRINOTECAN HYDROCHLORIDE
     Dosage: 230 MILLIGRAM, ONCE/2WEEKS
     Route: 041
     Dates: start: 20210526
  8. IRINOTECAN HYDROCHLORIDE [Concomitant]
     Active Substance: IRINOTECAN HYDROCHLORIDE
     Dosage: 230 MILLIGRAM, ONCE/2WEEKS
     Route: 041
     Dates: start: 20210908
  9. OXALIPLATIN [Concomitant]
     Active Substance: OXALIPLATIN
     Indication: Adenocarcinoma of colon
     Dosage: 120 MILLIGRAM, ONCE/2WEEKS
     Route: 041
     Dates: start: 20210421, end: 20210421
  10. OXALIPLATIN [Concomitant]
     Active Substance: OXALIPLATIN
     Dosage: 120 MILLIGRAM, ONCE/2WEEKS
     Route: 041
     Dates: start: 20210512, end: 20210818
  11. OXALIPLATIN [Concomitant]
     Active Substance: OXALIPLATIN
     Dosage: 120 MILLIGRAM, ONCE/2WEEKS
     Route: 041
     Dates: start: 20210908
  12. FLUOROURACIL [Concomitant]
     Active Substance: FLUOROURACIL
     Indication: Adenocarcinoma of colon
     Dosage: 4510 MILLIGRAM, ONCE/2WEEKS
     Route: 040
     Dates: start: 20210421, end: 20210423
  13. FLUOROURACIL [Concomitant]
     Active Substance: FLUOROURACIL
     Dosage: 4510 MILLIGRAM, ONCE/2WEEKS
     Route: 041
     Dates: start: 20210421, end: 20210423
  14. FLUOROURACIL [Concomitant]
     Active Substance: FLUOROURACIL
     Dosage: 4510 MILLIGRAM, ONCE/2WEEKS
     Route: 040
     Dates: start: 20210512, end: 20210820
  15. FLUOROURACIL [Concomitant]
     Active Substance: FLUOROURACIL
     Dosage: 4510 MILLIGRAM, ONCE/2WEEKS
     Route: 041
     Dates: start: 20210512, end: 20210820
  16. FLUOROURACIL [Concomitant]
     Active Substance: FLUOROURACIL
     Dosage: 4510 MILLIGRAM, ONCE/2WEEKS
     Route: 041
     Dates: start: 20210908
  17. FLUOROURACIL [Concomitant]
     Active Substance: FLUOROURACIL
     Dosage: 4510 MILLIGRAM, ONCE/2WEEKS
     Route: 041
     Dates: start: 20210908
  18. LEVOLEUCOVORIN CALCIUM [Concomitant]
     Active Substance: LEVOLEUCOVORIN CALCIUM
     Indication: Adenocarcinoma of colon
     Dosage: 280 MILLIGRAM, ONCE/2WEEKS
     Route: 041
     Dates: start: 20210421, end: 20210421
  19. LEVOLEUCOVORIN CALCIUM [Concomitant]
     Active Substance: LEVOLEUCOVORIN CALCIUM
     Dosage: 280 MILLIGRAM, ONCE/2WEEKS
     Route: 041
     Dates: start: 20210512, end: 20210818
  20. LEVOLEUCOVORIN CALCIUM [Concomitant]
     Active Substance: LEVOLEUCOVORIN CALCIUM
     Dosage: 280 MILLIGRAM, ONCE/2WEEKS
     Route: 041
     Dates: start: 20210908
  21. PALONOSETRON HYDROCHLORIDE [Concomitant]
     Active Substance: PALONOSETRON HYDROCHLORIDE
     Dosage: 0.75 MILLIGRAM, ONCE/2WEEKS
     Route: 042
     Dates: start: 20210421, end: 20210421
  22. PALONOSETRON HYDROCHLORIDE [Concomitant]
     Active Substance: PALONOSETRON HYDROCHLORIDE
     Dosage: 0.75 MILLIGRAM, ONCE/2WEEKS
     Route: 042
     Dates: start: 20210512, end: 20210518
  23. PALONOSETRON HYDROCHLORIDE [Concomitant]
     Active Substance: PALONOSETRON HYDROCHLORIDE
     Dosage: 0.75 MILLIGRAM, ONCE/2WEEKS
     Route: 042
     Dates: start: 20210908
  24. DEXAMETHASONE SODIUM PHOSPHATE [Concomitant]
     Active Substance: DEXAMETHASONE SODIUM PHOSPHATE
     Dosage: 9.9 MILLIGRAM, ONCE/2WEEKS
     Route: 042
     Dates: start: 20210421, end: 20210421
  25. DEXAMETHASONE SODIUM PHOSPHATE [Concomitant]
     Active Substance: DEXAMETHASONE SODIUM PHOSPHATE
     Dosage: 9.9 MILLIGRAM, ONCE/2WEEKS
     Route: 042
     Dates: start: 20210512, end: 20210818
  26. DEXAMETHASONE SODIUM PHOSPHATE [Concomitant]
     Active Substance: DEXAMETHASONE SODIUM PHOSPHATE
     Dosage: 9.9 MILLIGRAM, ONCE/2WEEKS
     Route: 042
     Dates: start: 20210908
  27. DEXAMETHASONE [Concomitant]
     Active Substance: DEXAMETHASONE
     Dosage: 8 MILLIGRAM, ONCE/2WEEKS
     Route: 048
     Dates: start: 20210422, end: 20210424
  28. DEXAMETHASONE [Concomitant]
     Active Substance: DEXAMETHASONE
     Dosage: 8 MILLIGRAM, ONCE/2WEEKS
     Route: 048
     Dates: start: 20210513, end: 20210821
  29. APREPITANT [Concomitant]
     Active Substance: APREPITANT
     Dosage: 125 MILLIGRAM, ONCE/2WEEKS
     Route: 048
     Dates: start: 20210421, end: 20210421
  30. APREPITANT [Concomitant]
     Active Substance: APREPITANT
     Dosage: 125 MILLIGRAM, ONCE/2WEEKS
     Route: 048
     Dates: start: 20210422, end: 20210423
  31. APREPITANT [Concomitant]
     Active Substance: APREPITANT
     Dosage: 125 MILLIGRAM, ONCE/2WEEKS
     Route: 048
     Dates: start: 20210512, end: 20210818
  32. APREPITANT [Concomitant]
     Active Substance: APREPITANT
     Dosage: 125 MILLIGRAM, ONCE/2WEEKS
     Route: 048
     Dates: start: 20210513, end: 20210820
  33. APREPITANT [Concomitant]
     Active Substance: APREPITANT
     Dosage: 125 MILLIGRAM, ONCE/2WEEKS
     Route: 048
     Dates: start: 20210908
  34. APREPITANT [Concomitant]
     Active Substance: APREPITANT
     Dosage: 125 MILLIGRAM, ONCE/2WEEKS
     Route: 048
     Dates: start: 20210909

REACTIONS (2)
  - Hyperkalaemia [Recovered/Resolved]
  - Neutrophil count decreased [Recovered/Resolved]

NARRATIVE: CASE EVENT DATE: 20210506
